FAERS Safety Report 9783062 (Version 1)
Quarter: 2013Q4

REPORT INFORMATION
  Report Type: Spontaneous
  Country: US (occurrence: US)
  Receive Date: 20131226
  Receipt Date: 20131226
  Transmission Date: 20140711
  Serious: No
  Sender: FDA-Public Use
  Company Number: US-ABBVIE-13P-163-1138640-00

PATIENT
  Age: 70 Year
  Sex: Female
  Weight: 77.18 kg

DRUGS (2)
  1. TEVETEN [Suspect]
     Indication: HYPERTENSION
  2. SYNTHROID [Concomitant]
     Indication: PRODUCT USED FOR UNKNOWN INDICATION

REACTIONS (1)
  - Blood pressure increased [Unknown]
